FAERS Safety Report 22525544 (Version 1)
Quarter: 2023Q2

REPORT INFORMATION
  Report Type: Spontaneous
  Country: US (occurrence: None)
  Receive Date: 20230605
  Receipt Date: 20230605
  Transmission Date: 20230721
  Serious: Yes (Disabling, Other)
  Sender: FDA-Public Use
  Company Number: None

PATIENT
  Age: 51 Year
  Sex: Female
  Weight: 101.25 kg

DRUGS (1)
  1. INVEGA SUSTENNA [Suspect]
     Active Substance: PALIPERIDONE PALMITATE
     Indication: Product used for unknown indication
     Dosage: OTHER FREQUENCY : EVERY 28 DAYS;?
     Route: 058

REACTIONS (8)
  - Weight increased [None]
  - Dyskinesia [None]
  - Tremor [None]
  - Oropharyngeal pain [None]
  - Dysphemia [None]
  - Feeling hot [None]
  - Fluid retention [None]
  - Product substitution issue [None]

NARRATIVE: CASE EVENT DATE: 20230501
